FAERS Safety Report 8758338 (Version 3)
Quarter: 2012Q4

REPORT INFORMATION
  Report Type: 
  Country: US (occurrence: US)
  Receive Date: 20120829
  Receipt Date: 20121219
  Transmission Date: 20130627
  Serious: No
  Sender: FDA-Public Use
  Company Number: US-AMGEN-USASP2012052970

PATIENT
  Age: 86 Year
  Sex: Female
  Weight: 63.95 kg

DRUGS (4)
  1. PROLIA [Suspect]
     Indication: SENILE OSTEOPOROSIS
     Dosage: 60 mg, q6mo
     Route: 058
     Dates: start: 20111004
  2. MULTIVITAMINS [Concomitant]
     Indication: SUPPLEMENTATION THERAPY
     Dosage: UNK UNK, qd
     Route: 048
  3. VITAMIN D3 [Concomitant]
     Indication: SUPPLEMENTATION THERAPY
     Dosage: 2000 unit, qd
     Route: 048
  4. KERATIN [Concomitant]
     Indication: SUPPLEMENTATION THERAPY
     Dosage: UNK UNK, qd
     Route: 048

REACTIONS (3)
  - Facial pain [Unknown]
  - Headache [Recovered/Resolved]
  - Myalgia [Recovered/Resolved]
